FAERS Safety Report 20900658 (Version 1)
Quarter: 2022Q2

REPORT INFORMATION
  Report Type: Spontaneous
  Country: US (occurrence: None)
  Receive Date: 20220531
  Receipt Date: 20220531
  Transmission Date: 20220721
  Serious: No
  Sender: FDA-Public Use
  Company Number: None

PATIENT
  Age: 49 Day
  Sex: Female
  Weight: 76.5 kg

DRUGS (11)
  1. TYRVAYA [Suspect]
     Active Substance: VARENICLINE TARTRATE
     Indication: Dry eye
     Dosage: OTHER QUANTITY : 2 SPRAY(S);?FREQUENCY : EVERY 12 HOURS;?OTHER ROUTE : SPRAY WALL OF NOSE TOWARDS EA
     Route: 050
     Dates: start: 20220502, end: 20220531
  2. EFFEXOR [Concomitant]
     Active Substance: VENLAFAXINE HYDROCHLORIDE
  3. ABILIFY [Concomitant]
     Active Substance: ARIPIPRAZOLE
  4. PRAVASTATIN [Concomitant]
     Active Substance: PRAVASTATIN
  5. OPZELURA [Concomitant]
     Active Substance: RUXOLITINIB PHOSPHATE
  6. XIIDRA [Concomitant]
     Active Substance: LIFITEGRAST
  7. POTASSIUM/MAGNESIUM [Concomitant]
  8. VITAMIN D3 [Concomitant]
     Active Substance: CHOLECALCIFEROL
  9. VITAMIN B12 [Concomitant]
     Active Substance: CYANOCOBALAMIN
  10. OMEGA 3 [Concomitant]
     Active Substance: CAPSAICIN
  11. XYZAL [Concomitant]

REACTIONS (3)
  - Paraesthesia [None]
  - Abdominal distension [None]
  - Drug interaction [None]

NARRATIVE: CASE EVENT DATE: 20220531
